FAERS Safety Report 10006535 (Version 2)
Quarter: 2014Q1

REPORT INFORMATION
  Report Type: Spontaneous
  Country: US (occurrence: US)
  Receive Date: 20140313
  Receipt Date: 20140313
  Transmission Date: 20141002
  Serious: No
  Sender: FDA-Public Use
  Company Number: US-SHIRE-ALL1-2014-01021

PATIENT
  Age: 19 Year
  Sex: Male
  Weight: 73.16 kg

DRUGS (2)
  1. VYVANSE [Suspect]
     Indication: ATTENTION DEFICIT/HYPERACTIVITY DISORDER
     Dosage: 30 MG, 1X/DAY:QD
     Route: 048
     Dates: start: 20140125, end: 20140131
  2. ZOLPIDEM [Concomitant]
     Indication: INSOMNIA
     Dosage: 10 MG, 1X/DAY:QD
     Route: 048
     Dates: start: 20140124

REACTIONS (4)
  - Increased appetite [Unknown]
  - Erectile dysfunction [Recovering/Resolving]
  - Dry mouth [Recovered/Resolved]
  - Decreased appetite [Recovered/Resolved]
